FAERS Safety Report 10370709 (Version 3)
Quarter: 2015Q4

REPORT INFORMATION
  Report Type: Spontaneous
  Country: SE (occurrence: SE)
  Receive Date: 20140808
  Receipt Date: 20151106
  Transmission Date: 20160304
  Serious: Yes (Other)
  Sender: FDA-Public Use
  Company Number: SE-JNJFOC-20140719875

PATIENT
  Sex: Male

DRUGS (2)
  1. XEPLION [Suspect]
     Active Substance: PALIPERIDONE PALMITATE
     Indication: ASPERGER^S DISORDER
     Route: 030
     Dates: end: 201205
  2. XEPLION [Suspect]
     Active Substance: PALIPERIDONE PALMITATE
     Indication: SCHIZOPHRENIA, PARANOID TYPE
     Route: 030
     Dates: end: 201205

REACTIONS (6)
  - Thrombosis [Unknown]
  - Gingival bleeding [Unknown]
  - Intestinal haemorrhage [Unknown]
  - Immune system disorder [Unknown]
  - Fungal infection [Not Recovered/Not Resolved]
  - Lip swelling [Not Recovered/Not Resolved]
